FAERS Safety Report 10558860 (Version 2)
Quarter: 2014Q4

REPORT INFORMATION
  Report Type: Spontaneous
  Country: US (occurrence: US)
  Receive Date: 20141031
  Receipt Date: 20141031
  Transmission Date: 20150529
  Serious: Yes (Death, Hospitalization, Other)
  Sender: FDA-Public Use
  Company Number: US-GLAXOSMITHKLINE-B0697034A

PATIENT
  Sex: Male

DRUGS (1)
  1. AVANDIA [Suspect]
     Active Substance: ROSIGLITAZONE MALEATE
     Indication: DIABETES MELLITUS
     Route: 048
     Dates: start: 200004, end: 200202

REACTIONS (7)
  - Ventricular fibrillation [Fatal]
  - Cardiac failure congestive [Fatal]
  - Mitral valve disease [Unknown]
  - Mitral valve incompetence [Fatal]
  - Myocardial infarction [Unknown]
  - Acute pulmonary oedema [Fatal]
  - Coronary artery disease [Unknown]
